FAERS Safety Report 16355677 (Version 1)
Quarter: 2019Q2

REPORT INFORMATION
  Report Type: Spontaneous
  Country: US (occurrence: US)
  Receive Date: 20190525
  Receipt Date: 20190525
  Transmission Date: 20190711
  Serious: Yes (Other)
  Sender: FDA-Public Use
  Company Number: US-TEVA-2019-US-1052640

PATIENT
  Sex: Female

DRUGS (5)
  1. VITAMIN B12 [Concomitant]
     Active Substance: CYANOCOBALAMIN
  2. MAGNESIUM [Concomitant]
     Active Substance: MAGNESIUM
  3. QVAR REDIHALER [Suspect]
     Active Substance: BECLOMETHASONE DIPROPIONATE
     Indication: BRONCHITIS CHRONIC
  4. CALCIUM [Concomitant]
     Active Substance: CALCIUM
  5. OCUVITE [Concomitant]
     Active Substance: VITAMINS

REACTIONS (3)
  - Device malfunction [Unknown]
  - Pneumonia [Unknown]
  - Throat irritation [Unknown]
